FAERS Safety Report 6405761-8 (Version None)
Quarter: 2009Q4

REPORT INFORMATION
  Report Type: 
  Country: None (occurrence: None)
  Receive Date: 20091019
  Receipt Date: 20091012
  Transmission Date: 20100525
  Serious: Yes (Hospitalization)
  Sender: FDA-Public Use
  Company Number: DE-WYE-G04585909

PATIENT
  Sex: Female

DRUGS (24)
  1. TORISEL [Suspect]
     Indication: RENAL CELL CARCINOMA
     Route: 042
     Dates: start: 20080320, end: 20080612
  2. TORISEL [Suspect]
     Route: 042
     Dates: start: 20080101, end: 20080710
  3. TORISEL [Suspect]
     Route: 042
     Dates: start: 20080101, end: 20090514
  4. AMPICILLIN AND SULBACTAM [Concomitant]
     Dosage: 4 SINGLE DOSES PER DAY
     Dates: start: 20080101, end: 20080622
  5. DEXAMETHASONE [Concomitant]
     Dosage: 2 MG 2X PER DAY FROM AN UNKNOWN DATE
     Dates: end: 20080101
  6. DEXAMETHASONE [Concomitant]
     Dates: start: 20080101, end: 20090101
  7. DEXAMETHASONE [Concomitant]
     Dates: start: 20090101
  8. NEXIUM [Concomitant]
  9. L-THYROXIN [Concomitant]
     Dosage: 75 UG, FROM AN UNKNOWN DATE
     Dates: end: 20080101
  10. L-THYROXIN [Concomitant]
     Dates: start: 20080101, end: 20090101
  11. L-THYROXIN [Concomitant]
     Dates: start: 20090101
  12. PANTOPRAZOLE SODIUM [Concomitant]
  13. BERLININSULIN H BASAL [Concomitant]
     Dosage: 24 IU FROM AN UNKNOWN DATE
     Route: 058
     Dates: end: 20080101
  14. BERLININSULIN H BASAL [Concomitant]
     Route: 058
     Dates: start: 20080101, end: 20090101
  15. BERLININSULIN H BASAL [Concomitant]
     Route: 058
     Dates: start: 20090101
  16. LASIX [Concomitant]
  17. KALINOR [Concomitant]
  18. NOVALGIN [Concomitant]
  19. CLEXANE [Concomitant]
     Route: 058
     Dates: start: 20090101
  20. FENTANYL [Concomitant]
     Dosage: DELIBERATING 25 UG/H, RENEWED EVERY 3 DAYS
     Route: 062
     Dates: start: 20090101
  21. DIFLUCAN [Concomitant]
     Dates: start: 20080101, end: 20080401
  22. INSULIN HUMAN [Concomitant]
     Dosage: 52 IU FROM AN UNKNOWN DATE
     Route: 058
     Dates: end: 20080101
  23. INSULIN HUMAN [Concomitant]
     Route: 058
     Dates: start: 20080101, end: 20090101
  24. INSULIN HUMAN [Concomitant]
     Route: 058
     Dates: start: 20090101

REACTIONS (4)
  - BRONCHITIS [None]
  - PNEUMONIA [None]
  - SUBILEUS [None]
  - SYSTEMIC INFLAMMATORY RESPONSE SYNDROME [None]
